FAERS Safety Report 15404965 (Version 2)
Quarter: 2018Q4

REPORT INFORMATION
  Report Type: Report from Study
  Country: None (occurrence: US)
  Receive Date: 20180920
  Receipt Date: 20181002
  Transmission Date: 20190204
  Serious: No
  Sender: FDA-Public Use
  Company Number: US-ABBVIE-18S-163-2490064-00

PATIENT
  Age: 71 Year
  Sex: Female
  Weight: 56.3 kg

DRUGS (19)
  1. TURMERIC [Concomitant]
     Active Substance: HERBALS\TURMERIC
     Indication: SUPPLEMENTATION THERAPY
  2. NEURO PS [Concomitant]
     Indication: MEMORY IMPAIRMENT
  3. RESVERATROL [Concomitant]
     Active Substance: DIETARY SUPPLEMENT\RESVERATROL
     Indication: PRODUCT USED FOR UNKNOWN INDICATION
  4. CREON [Suspect]
     Active Substance: PANCRELIPASE AMYLASE\PANCRELIPASE LIPASE\PANCRELIPASE PROTEASE
     Indication: PANCREATIC DISORDER
     Dosage: 1 CAPSULE WITH MEALS
     Route: 048
     Dates: start: 20180901
  5. MYLANTA [Suspect]
     Active Substance: ALUMINUM HYDROXIDE\DIMETHICONE\MAGNESIUM HYDROXIDE
     Indication: GASTROOESOPHAGEAL REFLUX DISEASE
     Route: 048
     Dates: end: 2018
  6. COENZYME B-COMPLEX CAPS [Concomitant]
     Indication: VITAMIN SUPPLEMENTATION
  7. VITAMIN K2 [Concomitant]
     Active Substance: MENAQUINONE 6
     Indication: PRODUCT USED FOR UNKNOWN INDICATION
  8. POMEGRANATE [Concomitant]
     Active Substance: POMEGRANATE
     Indication: PRODUCT USED FOR UNKNOWN INDICATION
  9. ALPHA LIPOIC ACID [Concomitant]
     Active Substance: .ALPHA.-LIPOIC ACID
     Indication: SUPPLEMENTATION THERAPY
  10. CANDIDA FORTE [Concomitant]
     Indication: GASTROINTESTINAL DISORDER
  11. N-ACETYLCYSTEINE [Concomitant]
     Active Substance: ACETYLCYSTEINE
     Indication: PRODUCT USED FOR UNKNOWN INDICATION
  12. CALCIUM [Concomitant]
     Active Substance: CALCIUM
     Indication: MINERAL SUPPLEMENTATION
  13. VITAMIN B6 [Concomitant]
     Active Substance: PYRIDOXINE HYDROCHLORIDE
     Indication: PRODUCT USED FOR UNKNOWN INDICATION
  14. S-ADENOSYL-L-METHIONINE [Concomitant]
     Active Substance: ADEMETIONINE
     Indication: ANTIDEPRESSANT THERAPY
  15. VITAMIN D3 [Concomitant]
     Active Substance: CHOLECALCIFEROL
     Indication: PRODUCT USED FOR UNKNOWN INDICATION
  16. VALTREX [Concomitant]
     Active Substance: VALACYCLOVIR HYDROCHLORIDE
     Indication: HERPES VIRUS INFECTION
  17. DHEA [Concomitant]
     Active Substance: PRASTERONE
     Indication: PRODUCT USED FOR UNKNOWN INDICATION
  18. LUTEIN ZEAXANTHIN [Concomitant]
     Indication: EYE DISORDER
  19. ASTAXANTHIN [Concomitant]
     Indication: PRODUCT USED FOR UNKNOWN INDICATION

REACTIONS (6)
  - Diarrhoea [Recovered/Resolved]
  - Pollakiuria [Unknown]
  - Weight decreased [Unknown]
  - Constipation [Unknown]
  - Abdominal pain [Not Recovered/Not Resolved]
  - Lethargy [Unknown]

NARRATIVE: CASE EVENT DATE: 201809
